FAERS Safety Report 10596754 (Version 2)
Quarter: 2014Q4

REPORT INFORMATION
  Report Type: Spontaneous
  Country: US (occurrence: US)
  Receive Date: 20141120
  Receipt Date: 20141120
  Transmission Date: 20150529
  Serious: Yes (Hospitalization)
  Sender: FDA-Public Use
  Company Number: US-GILEAD-2014-0121015

PATIENT
  Age: 75 Year
  Sex: Male
  Weight: 113.38 kg

DRUGS (10)
  1. LYRICA [Concomitant]
     Active Substance: PREGABALIN
  2. RANEXA [Suspect]
     Active Substance: RANOLAZINE
     Indication: PRODUCT USED FOR UNKNOWN INDICATION
     Dosage: 1000 MG, BID
     Route: 065
     Dates: start: 201406, end: 201408
  3. TOPROL XL [Concomitant]
     Active Substance: METOPROLOL SUCCINATE
  4. CELLCEPT [Concomitant]
     Active Substance: MYCOPHENOLATE MOFETIL\MYCOPHENOLATE MOFETIL HYDROCHLORIDE
  5. PROGRAF [Concomitant]
     Active Substance: TACROLIMUS\TACROLIMUS ANHYDROUS
  6. RANEXA [Suspect]
     Active Substance: RANOLAZINE
     Dosage: 500 MG, BID
     Route: 065
     Dates: start: 201206, end: 201406
  7. PRAVASTATIN [Concomitant]
     Active Substance: PRAVASTATIN\PRAVASTATIN SODIUM
  8. NORVASC [Concomitant]
     Active Substance: AMLODIPINE BESYLATE
  9. PLAVIX [Concomitant]
     Active Substance: CLOPIDOGREL BISULFATE
  10. JANUVIA [Concomitant]
     Active Substance: SITAGLIPTIN PHOSPHATE

REACTIONS (1)
  - Tremor [Recovered/Resolved]

NARRATIVE: CASE EVENT DATE: 201406
